FAERS Safety Report 4709078-9 (Version None)
Quarter: 2005Q3

REPORT INFORMATION
  Report Type: 
  Country: None (occurrence: None)
  Receive Date: 20050707
  Receipt Date: 20050707
  Transmission Date: 20060218
  Serious: No
  Sender: FDA-Public Use
  Company Number: None

PATIENT
  Age: 63 Year
  Sex: Male

DRUGS (2)
  1. PROPRANOLOL 20 MG WATSON [Suspect]
     Indication: HEART RATE IRREGULAR
     Dosage: TAKE 1 TAB TWICE A DAY
     Dates: start: 20050614
  2. PROPRANOLOL 20 MG WATSON [Suspect]
     Indication: TREMOR
     Dosage: TAKE 1 TAB TWICE A DAY
     Dates: start: 20050614

REACTIONS (3)
  - HEART RATE IRREGULAR [None]
  - PHARMACEUTICAL PRODUCT COMPLAINT [None]
  - TREMOR [None]
